FAERS Safety Report 4683688-X (Version None)
Quarter: 2005Q2

REPORT INFORMATION
  Report Type: 
  Country: None (occurrence: None)
  Receive Date: 20050607
  Receipt Date: 20050601
  Transmission Date: 20051028
  Serious: Yes (Hospitalization)
  Sender: FDA-Public Use
  Company Number: 200514699US

PATIENT
  Sex: Male

DRUGS (2)
  1. LOVENOX [Suspect]
     Indication: LYMPHADENECTOMY
     Dates: start: 20031218
  2. COUMADIN [Concomitant]
     Dosage: DOSE: UNK
     Dates: start: 20031218, end: 20040223

REACTIONS (3)
  - CEREBROVASCULAR ACCIDENT [None]
  - PROCEDURAL COMPLICATION [None]
  - PULMONARY EMBOLISM [None]
